FAERS Safety Report 8523252-5 (Version None)
Quarter: 2012Q3

REPORT INFORMATION
  Report Type: 
  Country: None (occurrence: None)
  Receive Date: 20120709
  Receipt Date: 20120628
  Transmission Date: 20120928
  Serious: Yes (Hospitalization)
  Sender: FDA-Public Use
  Company Number: DSA_58273_2012

PATIENT
  Age: 54 Year
  Sex: Female

DRUGS (1)
  1. ELIDEL [Suspect]
     Indication: SYSTEMIC LUPUS ERYTHEMATOSUS
     Dosage: (1% DF ONCE DAILY TOPICAL)
     Route: 061
     Dates: start: 20080101, end: 20120601

REACTIONS (1)
  - ENDOMETRIAL CANCER [None]
